FAERS Safety Report 23268632 (Version 1)
Quarter: 2023Q4

REPORT INFORMATION
  Report Type: Spontaneous
  Country: CN (occurrence: CN)
  Receive Date: 20231206
  Receipt Date: 20231206
  Transmission Date: 20240109
  Serious: Yes (Other)
  Sender: FDA-Public Use
  Company Number: CN-Eisai-EC-2023-153999

PATIENT
  Age: 73 Year
  Sex: Male

DRUGS (1)
  1. LENVIMA [Suspect]
     Active Substance: LENVATINIB
     Indication: Hepatic cancer
     Route: 048
     Dates: start: 20231004, end: 20231101

REACTIONS (3)
  - Erythrosis [Unknown]
  - Skin swelling [Unknown]
  - Onychomadesis [Unknown]

NARRATIVE: CASE EVENT DATE: 20231101
